FAERS Safety Report 22045902 (Version 2)
Quarter: 2023Q2

REPORT INFORMATION
  Report Type: Spontaneous
  Country: US (occurrence: US)
  Receive Date: 20230228
  Receipt Date: 20230407
  Transmission Date: 20230721
  Serious: No
  Sender: FDA-Public Use
  Company Number: US-PFIZER INC-202300081586

PATIENT
  Age: 78 Year
  Sex: Female
  Weight: 104.33 kg

DRUGS (2)
  1. DEPO-ESTRADIOL [Suspect]
     Active Substance: ESTRADIOL CYPIONATE
     Indication: Hysterectomy
     Dosage: 2.5, ONCE A MONTH
  2. DEPO-ESTRADIOL [Suspect]
     Active Substance: ESTRADIOL CYPIONATE
     Indication: Oestrogen deficiency

REACTIONS (8)
  - Weight increased [Unknown]
  - Hyperhidrosis [Unknown]
  - Fatigue [Unknown]
  - Burning sensation [Unknown]
  - Alopecia [Unknown]
  - Feeling abnormal [Unknown]
  - Product supply issue [Unknown]
  - Product dose omission issue [Unknown]
